FAERS Safety Report 6204087-5 (Version None)
Quarter: 2009Q2

REPORT INFORMATION
  Report Type: 
  Country: None (occurrence: None)
  Receive Date: 20090527
  Receipt Date: 20090519
  Transmission Date: 20091009
  Serious: Yes (Hospitalization)
  Sender: FDA-Public Use
  Company Number: US-PFIZER INC-2005156396

PATIENT
  Sex: Male
  Weight: 68.04 kg

DRUGS (2)
  1. MARAVIROC [Suspect]
     Indication: HIV INFECTION
     Dosage: UNK
     Route: 048
     Dates: start: 20050322, end: 20051024
  2. NEUPOGEN [Suspect]
     Indication: NEUTROPENIA
     Route: 058
     Dates: start: 20051115, end: 20051116

REACTIONS (1)
  - BONE PAIN [None]
